FAERS Safety Report 6223479-1 (Version None)
Quarter: 2009Q2

REPORT INFORMATION
  Report Type: 
  Country: None (occurrence: None)
  Receive Date: 20090609
  Receipt Date: 20090605
  Transmission Date: 20091009
  Serious: Yes (Death, Hospitalization)
  Sender: FDA-Public Use
  Company Number: US-WYE-H08831409

PATIENT
  Age: 57 Year
  Sex: Female
  Weight: 55.3 kg

DRUGS (3)
  1. MYLOTARG [Suspect]
     Indication: ACUTE MYELOID LEUKAEMIA
     Dosage: 9.2 MG OVER 2 HOURS ON DAY 4 (9.2 MG TOTAL DOSE ADMINISTERED THIS COURSE), INTRAVENOUS
     Route: 042
     Dates: start: 20090314, end: 20090314
  2. CYTARABINE [Suspect]
     Indication: ACUTE MYELOID LEUKAEMIA
     Dosage: 154 MG ON DAYS 1 THROUGH 7 (154 MG TOTAL DOSE ADMINISTERED THIS COURSE), INTRAVENOUS
     Route: 042
     Dates: start: 20090311, end: 20090317
  3. DAUNORUBICIN HCL [Suspect]
     Indication: ACUTE MYELOID LEUKAEMIA
     Dosage: 69 MG IV PUSH ON DAYS 1, 2, 3 (69 MG TOTAL DOSE ADMINISTERED THIS COURSE), INTRAVENOUS
     Route: 042
     Dates: start: 20090311, end: 20090313

REACTIONS (8)
  - ACUTE RESPIRATORY DISTRESS SYNDROME [None]
  - DEPRESSED LEVEL OF CONSCIOUSNESS [None]
  - EMBOLIC STROKE [None]
  - ISCHAEMIC STROKE [None]
  - MULTI-ORGAN FAILURE [None]
  - PANCYTOPENIA [None]
  - PNEUMONIA [None]
  - URINARY BLADDER HAEMORRHAGE [None]
